FAERS Safety Report 6235150-0 (Version None)
Quarter: 2009Q2

REPORT INFORMATION
  Report Type: 
  Country: None (occurrence: None)
  Receive Date: 20090618
  Receipt Date: 20090611
  Transmission Date: 20091009
  Serious: Yes (Death)
  Sender: FDA-Public Use
  Company Number: AU-WYE-G03840409

PATIENT

DRUGS (1)
  1. PRISTIQ [Suspect]

REACTIONS (2)
  - AGGRESSION [None]
  - COMPLETED SUICIDE [None]
